FAERS Safety Report 9330898 (Version 1)
Quarter: 2013Q2

REPORT INFORMATION
  Report Type: Spontaneous
  Country: CA (occurrence: None)
  Receive Date: 20130531
  Receipt Date: 20130531
  Transmission Date: 20140414
  Serious: Yes (Other)
  Sender: FDA-Public Use
  Company Number: CA-ALSI-201300131

PATIENT
  Age: 5 Year
  Sex: Male

DRUGS (3)
  1. NITROUS OXIDE [Suspect]
  2. SUCCINYLCHOLINE CHLORIDE [Suspect]
  3. THIOPENTAL SODIUM [Suspect]

REACTIONS (6)
  - Ataxia [None]
  - Balance disorder [None]
  - Blood creatine phosphokinase increased [None]
  - Blood lactate dehydrogenase increased [None]
  - Fatigue [None]
  - Somnolence [None]
